FAERS Safety Report 22211129 (Version 2)
Quarter: 2024Q3

REPORT INFORMATION
  Report Type: Spontaneous
  Country: US (occurrence: US)
  Receive Date: 20230414
  Receipt Date: 20240924
  Transmission Date: 20241016
  Serious: No
  Sender: SANOFI AVENTIS
  Company Number: US-SA-SAC20230411001408

PATIENT
  Sex: Female

DRUGS (51)
  1. DUPIXENT [Suspect]
     Active Substance: DUPILUMAB
     Indication: Asthma
     Dosage: 300 MG, QOW
     Route: 058
     Dates: start: 20220325
  2. LORAZEPAM [Concomitant]
     Active Substance: LORAZEPAM
     Dosage: 1 MG
  3. ADDERALL [Concomitant]
     Active Substance: AMPHETAMINE ASPARTATE\AMPHETAMINE SULFATE\DEXTROAMPHETAMINE SACCHARATE\DEXTROAMPHETAMINE SULFATE
  4. ALBUTEROL SULFATE [Concomitant]
     Active Substance: ALBUTEROL SULFATE
  5. AMBIEN [Concomitant]
     Active Substance: ZOLPIDEM TARTRATE
  6. ATENOLOL [Concomitant]
     Active Substance: ATENOLOL
     Dosage: UNK
  7. ASPIRIN\BUTALBITAL\CAFFEINE [Concomitant]
     Active Substance: ASPIRIN\BUTALBITAL\CAFFEINE
  8. CALCIUM [Concomitant]
     Active Substance: CALCIUM
     Dosage: 500 (UNITS NOT PROVIDED), QD
  9. CYMBALTA [Concomitant]
     Active Substance: DULOXETINE HYDROCHLORIDE
  10. DIAZEPAM [Concomitant]
     Active Substance: DIAZEPAM
  11. DULERA [Concomitant]
     Active Substance: FORMOTEROL FUMARATE DIHYDRATE\MOMETASONE FUROATE
  12. DULOXETINE [Concomitant]
     Active Substance: DULOXETINE
  13. DYMISTA [Concomitant]
     Active Substance: AZELASTINE HYDROCHLORIDE\FLUTICASONE PROPIONATE
  14. ELIQUIS [Concomitant]
     Active Substance: APIXABAN
  15. EMGALITY [Concomitant]
     Active Substance: GALCANEZUMAB-GNLM
  16. FIORICET [Concomitant]
     Active Substance: ACETAMINOPHEN\BUTALBITAL\CAFFEINE
  17. GRALISE [Concomitant]
     Active Substance: GABAPENTIN
  18. HYDROCORTISONE BUTYRATE [Concomitant]
     Active Substance: HYDROCORTISONE BUTYRATE
  19. ALBUTEROL\IPRATROPIUM [Concomitant]
     Active Substance: ALBUTEROL\IPRATROPIUM
  20. BETAMETHASONE\CLOTRIMAZOLE [Concomitant]
     Active Substance: BETAMETHASONE\CLOTRIMAZOLE
  21. LIALDA [Concomitant]
     Active Substance: MESALAMINE
  22. MIRAPEX [Concomitant]
     Active Substance: PRAMIPEXOLE DIHYDROCHLORIDE
  23. MORPHINE SULFATE [Concomitant]
     Active Substance: MORPHINE SULFATE
  24. MOTRIN IB [Concomitant]
     Active Substance: IBUPROFEN
  25. NARCAN [Concomitant]
     Active Substance: NALOXONE HYDROCHLORIDE
  26. ONDANSETRON [Concomitant]
     Active Substance: ONDANSETRON
     Dosage: 8 MG, QD
  27. PRAMIPEXOLE [Concomitant]
     Active Substance: PRAMIPEXOLE\PRAMIPEXOLE DIHYDROCHLORIDE
  28. PREDNISONE [Concomitant]
     Active Substance: PREDNISONE
  29. PREVACID [Concomitant]
     Active Substance: LANSOPRAZOLE
  30. RIZATRIPTAN [Concomitant]
     Active Substance: RIZATRIPTAN
     Dosage: 10 MG, QD
  31. SINGULAIR [Concomitant]
     Active Substance: MONTELUKAST SODIUM
  32. SOLIFENACIN [Concomitant]
     Active Substance: SOLIFENACIN
  33. TIZANIDINE [Concomitant]
     Active Substance: TIZANIDINE
  34. UBRELVY [Concomitant]
     Active Substance: UBROGEPANT
  35. VESICARE [Concomitant]
     Active Substance: SOLIFENACIN SUCCINATE
  36. VITAMIN C [Concomitant]
     Active Substance: ASCORBIC ACID
  37. ZINC [Concomitant]
     Active Substance: ZINC
  38. ZOLPIDEM [Concomitant]
     Active Substance: ZOLPIDEM TARTRATE
  39. UBRELVY [Concomitant]
     Active Substance: UBROGEPANT
  40. MORPHINE SULFATE [Concomitant]
     Active Substance: MORPHINE SULFATE
  41. HYDROXYZINE HYDROCHLORIDE [Concomitant]
     Active Substance: HYDROXYZINE HYDROCHLORIDE
  42. ELIQUIS [Concomitant]
     Active Substance: APIXABAN
  43. ATROPINE\DIPHENOXYLATE [Concomitant]
     Active Substance: ATROPINE\DIPHENOXYLATE
  44. LORAZEPAM [Concomitant]
     Active Substance: LORAZEPAM
     Dosage: UNK
  45. EMGALITY [Concomitant]
     Active Substance: GALCANEZUMAB-GNLM
  46. HYDROCHLOROTHIAZIDE [Concomitant]
     Active Substance: HYDROCHLOROTHIAZIDE
  47. HYDROCHLOROTHIAZIDE [Concomitant]
     Active Substance: HYDROCHLOROTHIAZIDE
  48. FOLIC ACID\IRON\MINERALS\VITAMINS [Concomitant]
     Active Substance: FOLIC ACID\IRON\MINERALS\VITAMINS
  49. BETAMETHASONE CLOTRIMAZOLE [Concomitant]
     Active Substance: BETAMETHASONE DIPROPIONATE\CLOTRIMAZOLE
  50. ATROPINE\DIPHENOXYLATE [Concomitant]
     Active Substance: ATROPINE\DIPHENOXYLATE
  51. FOLIC ACID\IRON\MINERALS\VITAMINS [Concomitant]
     Active Substance: FOLIC ACID\IRON\MINERALS\VITAMINS

REACTIONS (5)
  - Impaired quality of life [Unknown]
  - Eye irritation [Unknown]
  - Asthma [Unknown]
  - Product dose omission in error [Unknown]
  - Drug ineffective [Unknown]

NARRATIVE: CASE EVENT DATE: 20240701
